FAERS Safety Report 23482764 (Version 2)
Quarter: 2024Q2

REPORT INFORMATION
  Report Type: Spontaneous
  Country: CA (occurrence: CA)
  Receive Date: 20240205
  Receipt Date: 20240507
  Transmission Date: 20240716
  Serious: Yes (Other)
  Sender: FDA-Public Use
  Company Number: CA-PFIZER INC-202300307869

PATIENT
  Age: 40 Year
  Sex: Male

DRUGS (13)
  1. RUXIENCE [Suspect]
     Active Substance: RITUXIMAB-PVVR
     Indication: Glomerulonephritis membranous
     Dosage: 1 G X 2 DOSES (14 DAYS APART), THEN 1 G EVERY 6 MONTHS
     Route: 042
     Dates: start: 20240117
  2. RUXIENCE [Suspect]
     Active Substance: RITUXIMAB-PVVR
     Dosage: 1 G X 2 DOSES (14 DAYS APART), THEN 1 G EVERY 6 MONTHS (MG, DAY 15 RETREATMENT)
     Route: 042
     Dates: start: 20240131
  3. CYCLOBENZAPRINE [Concomitant]
     Active Substance: CYCLOBENZAPRINE
     Dosage: 10 MG, 3X/DAY, PRN
  4. EZETIMIBE [Concomitant]
     Active Substance: EZETIMIBE
     Dosage: 10 MG
  5. FUROSEMIDE [Concomitant]
     Active Substance: FUROSEMIDE
     Dosage: 30 MG
  6. LOVASTATIN [Concomitant]
     Active Substance: LOVASTATIN
     Dosage: 1 DF
  7. NAPROXEN [Concomitant]
     Active Substance: NAPROXEN
     Dosage: 250 MG, TWICE A DAY PRN
  8. PERINDOPRIL [Concomitant]
     Active Substance: PERINDOPRIL
     Dosage: 1 DF, 4MG/2MG
  9. ROSUVASTATIN [Concomitant]
     Active Substance: ROSUVASTATIN
     Dosage: 40 MG, DAILY
  10. TAMSULOSIN [Concomitant]
     Active Substance: TAMSULOSIN
     Dosage: 1 DF, 0.4 MG
  11. TRESIBA [Concomitant]
     Active Substance: INSULIN DEGLUDEC
     Dosage: 1 DF, INSULIN
  12. VENLAFAXINE [Concomitant]
     Active Substance: VENLAFAXINE HYDROCHLORIDE
     Dosage: 75 MG
  13. VARENICLINE [Concomitant]
     Active Substance: VARENICLINE
     Dosage: 1 MG, 2X/DAY

REACTIONS (8)
  - Trismus [Recovering/Resolving]
  - Pruritus [Recovered/Resolved]
  - Throat irritation [Recovered/Resolved]
  - Insomnia [Not Recovered/Not Resolved]
  - Off label use [Unknown]
  - Hypertension [Not Recovered/Not Resolved]
  - Proteinuria [Not Recovered/Not Resolved]
  - Lymphocyte count increased [Unknown]

NARRATIVE: CASE EVENT DATE: 20240101
